FAERS Safety Report 6370841-2 (Version None)
Quarter: 2009Q3

REPORT INFORMATION
  Report Type: 
  Country: None (occurrence: None)
  Receive Date: 20090923
  Receipt Date: 20070614
  Transmission Date: 20100115
  Serious: No
  Sender: FDA-Public Use
  Company Number: US-ASTRAZENECA-2006UW23852

PATIENT
  Age: 20834 Day
  Sex: Female
  Weight: 73.9 kg

DRUGS (20)
  1. SEROQUEL [Suspect]
     Indication: DEPRESSION
     Dosage: 25 MG TO 200 MG
     Route: 048
     Dates: start: 20030227
  2. SEROQUEL [Suspect]
     Indication: SLEEP DISORDER
     Dosage: 25 MG TO 200 MG
     Route: 048
     Dates: start: 20030227
  3. ZYPREXA [Concomitant]
     Route: 065
     Dates: start: 20020806, end: 20030227
  4. EFFEXOR [Concomitant]
     Route: 065
  5. ALPRAZOLAM [Concomitant]
     Dosage: 0.25 MG - 0.5 MG
     Route: 065
  6. HYDROXYZINE [Concomitant]
     Route: 065
  7. LUNESTA [Concomitant]
     Route: 065
  8. PREDNISONE [Concomitant]
     Route: 065
  9. CEFUROXIME [Concomitant]
     Route: 065
  10. PROTONIX [Concomitant]
     Route: 065
  11. METHYLPREDNISOLONE 4MG TAB [Concomitant]
     Route: 065
  12. COMBIVENT [Concomitant]
     Route: 065
  13. VALTREX [Concomitant]
     Route: 065
  14. SYNTHROID [Concomitant]
     Route: 065
  15. LIPITOR [Concomitant]
     Dosage: 10 MG - 20 MG
     Route: 065
  16. DIOVAN [Concomitant]
     Route: 065
  17. ESTRATEST [Concomitant]
     Route: 065
  18. VIOXX [Concomitant]
     Route: 065
  19. ZYRTEC [Concomitant]
     Route: 065
  20. LISINOPRIL [Concomitant]
     Route: 065

REACTIONS (8)
  - ANXIETY [None]
  - BRONCHITIS [None]
  - CHRONIC OBSTRUCTIVE PULMONARY DISEASE [None]
  - DIABETES MELLITUS [None]
  - GASTROOESOPHAGEAL REFLUX DISEASE [None]
  - HYPERTENSION [None]
  - PRURITUS [None]
  - SINUSITIS [None]
